FAERS Safety Report 13709319 (Version 2)
Quarter: 2017Q3

REPORT INFORMATION
  Report Type: Report from Study
  Country: IT (occurrence: IT)
  Receive Date: 20170703
  Receipt Date: 20170727
  Transmission Date: 20171127
  Serious: Yes (Other)
  Sender: FDA-Public Use
  Company Number: IT-AUROBINDO-AUR-APL-2017-36576

PATIENT
  Age: 1 Year
  Sex: Male
  Weight: 12 kg

DRUGS (2)
  1. AUGMENTIN [Concomitant]
     Active Substance: AMOXICILLIN\CLAVULANATE POTASSIUM
     Indication: PYREXIA
     Route: 065
  2. PARACETAMOL ORAL SOLUTION [Suspect]
     Active Substance: ACETAMINOPHEN
     Indication: PYREXIA
     Dosage: 5 ML, TOTAL
     Route: 048
     Dates: start: 20170611, end: 20170611

REACTIONS (3)
  - Respiratory distress [Recovering/Resolving]
  - Wheezing [Recovering/Resolving]
  - Bronchospasm [Recovering/Resolving]

NARRATIVE: CASE EVENT DATE: 20170611
